FAERS Safety Report 7906852-2 (Version None)
Quarter: 2011Q4

REPORT INFORMATION
  Report Type: 
  Country: None (occurrence: None)
  Receive Date: 20111110
  Receipt Date: 20111109
  Transmission Date: 20120403
  Serious: Yes (Other)
  Sender: FDA-Public Use
  Company Number: JP-PFIZER INC-2011244123

PATIENT
  Age: 81 Year
  Sex: Female
  Weight: 53 kg

DRUGS (7)
  1. HYALURONATE SODIUM [Concomitant]
     Indication: BACK PAIN
     Dosage: UNK
     Dates: start: 20110607, end: 20111011
  2. KETOPROFEN [Concomitant]
     Indication: BACK PAIN
     Dosage: UNK
     Route: 062
     Dates: start: 20110607
  3. LYRICA [Suspect]
     Dosage: 75 MG, 2X/DAY
     Route: 048
     Dates: start: 20111011, end: 20111018
  4. IDOMETHINE [Concomitant]
     Indication: BACK PAIN
     Dosage: UNK
     Route: 061
     Dates: start: 20110607
  5. XYLOCAINE [Concomitant]
     Indication: BACK PAIN
     Dosage: 1 ML, UNK
     Dates: start: 20110607, end: 20111011
  6. LYRICA [Suspect]
     Indication: HYPOAESTHESIA
     Dosage: 75 MG, 2X/DAY
     Route: 048
     Dates: start: 20110706, end: 20110713
  7. NEUROTROPIN [Suspect]
     Indication: BACK PAIN
     Dosage: 3.6 IU, UNK
     Route: 042
     Dates: start: 20111011

REACTIONS (5)
  - MALAISE [None]
  - DIZZINESS [None]
  - POLLAKIURIA [None]
  - URETHRAL DISORDER [None]
  - CYSTITIS [None]
